FAERS Safety Report 6234488-0 (Version None)
Quarter: 2009Q2

REPORT INFORMATION
  Report Type: 
  Country: None (occurrence: None)
  Receive Date: 20090618
  Receipt Date: 20080820
  Transmission Date: 20091009
  Serious: No
  Sender: FDA-Public Use
  Company Number: US-BRISTOL-MYERS SQUIBB COMPANY-14308357

PATIENT
  Age: 67 Year
  Sex: Male
  Weight: 59 kg

DRUGS (12)
  1. CARBIDOPA + LEVODOPA [Suspect]
     Indication: PARKINSON'S DISEASE
     Dosage: 2 DOSAGE FORM = 2 TABLETS
  2. PLAVIX [Suspect]
     Dates: start: 20080704
  3. LIPITOR [Concomitant]
  4. ALBUTEROL [Concomitant]
     Dosage: ALBUTEROL MDI INHALER; 2 DOSAGE FORM= 2 PUFFS BID(YEARS)
     Route: 055
  5. SEREVENT [Concomitant]
     Dosage: SEREVENT DISC INHALER; 1 DOSAGE FORM= 1 PUFF AT NIGHT(A COUPLE OF YEARS)
     Route: 055
  6. FLOVENT [Concomitant]
     Dosage: 2 DOSAGE FORM= 2 PUFFS BID (4-5 YEARS OR LONGER)
  7. ASPIRIN [Concomitant]
     Dosage: 81MG QD (10-12 YEARS)
  8. VITAMIN B COMPLEX CAP [Concomitant]
  9. DIPHENHYDRAMINE HCL [Concomitant]
     Dosage: 25MG AT HS.
  10. PROMEGA [Concomitant]
     Dosage: PRO-OMEGA D( ALL QD FOR COUPLE OF MONTHS)
  11. VITAMIN D [Concomitant]
  12. NUTRITIONAL SUPPLEMENT [Concomitant]

REACTIONS (1)
  - DIZZINESS [None]
